FAERS Safety Report 7112140-7 (Version None)
Quarter: 2010Q4

REPORT INFORMATION
  Report Type: 
  Country: None (occurrence: None)
  Receive Date: 20101119
  Receipt Date: 20100204
  Transmission Date: 20110411
  Serious: No
  Sender: FDA-Public Use
  Company Number: A0836314A

PATIENT
  Sex: Male

DRUGS (5)
  1. AVODART [Suspect]
     Indication: BENIGN PROSTATIC HYPERPLASIA
     Route: 048
     Dates: start: 20091101
  2. NON-GSK H1N1 VACCINE [Suspect]
     Indication: PROPHYLAXIS
     Route: 065
     Dates: start: 20090101, end: 20090101
  3. SYNTHROID [Concomitant]
  4. LIPITOR [Concomitant]
  5. FLOMAX [Concomitant]

REACTIONS (6)
  - BENIGN PROSTATIC HYPERPLASIA [None]
  - CATHETER PLACEMENT [None]
  - DIARRHOEA [None]
  - DRUG INTERACTION [None]
  - DYSURIA [None]
  - PROSTATITIS [None]
